FAERS Safety Report 6181910-4 (Version None)
Quarter: 2009Q2

REPORT INFORMATION
  Report Type: 
  Country: None (occurrence: None)
  Receive Date: 20090505
  Receipt Date: 20090422
  Transmission Date: 20091009
  Serious: Yes (Hospitalization, Other)
  Sender: FDA-Public Use
  Company Number: 230951K08USA

PATIENT
  Age: 60 Year
  Sex: Male
  Weight: 86 kg

DRUGS (13)
  1. REBIF [Suspect]
     Indication: MULTIPLE SCLEROSIS
     Dosage: 44 MCG, 3 IN 1 WEEKS, SUBCUTANEOUS; 44 MCG, 3 IN 1 WEEKS, SUBCUTANEOUS
     Route: 058
     Dates: start: 20080422, end: 20081008
  2. REBIF [Suspect]
     Indication: MULTIPLE SCLEROSIS
     Dosage: 44 MCG, 3 IN 1 WEEKS, SUBCUTANEOUS; 44 MCG, 3 IN 1 WEEKS, SUBCUTANEOUS
     Route: 058
     Dates: start: 20080101, end: 20081101
  3. LISINOPRIL [Concomitant]
  4. HYDROCHLOROTHIAZIDE [Concomitant]
  5. SIMVASTATIN [Concomitant]
  6. ASPIRIN [Concomitant]
  7. RANITDINE (RANITIDINE /00550801/) [Concomitant]
  8. AMLODIPINE [Concomitant]
  9. ISOSORBIDE (ISOSORBIDE) [Concomitant]
  10. EXFORGE (ALL OTHER THERAPEUTIC PRODUCTS) [Concomitant]
  11. XANAX [Concomitant]
  12. HYDROCODONE (HYDROCODONE) [Concomitant]
  13. COENZYME Q10 [Concomitant]

REACTIONS (7)
  - BASAL CELL CARCINOMA [None]
  - DIZZINESS [None]
  - HEPATIC ENZYME INCREASED [None]
  - IMPAIRED HEALING [None]
  - MYOCARDIAL INFARCTION [None]
  - OBSTRUCTION [None]
  - SCAB [None]
